FAERS Safety Report 9338589 (Version 1)
Quarter: 2013Q2

REPORT INFORMATION
  Report Type: Spontaneous
  Country: CA (occurrence: CA)
  Receive Date: 20130610
  Receipt Date: 20130610
  Transmission Date: 20140414
  Serious: Yes (Hospitalization)
  Sender: FDA-Public Use
  Company Number: CA-ROCHE-1234235

PATIENT
  Age: 69 Year
  Sex: Male
  Weight: 90 kg

DRUGS (2)
  1. XELODA [Suspect]
     Indication: PRODUCT USED FOR UNKNOWN INDICATION
     Route: 048
  2. ZANTAC [Concomitant]
     Route: 065

REACTIONS (8)
  - Diarrhoea [Unknown]
  - Erythema [Unknown]
  - Genital herpes [Unknown]
  - Neutropenia [Unknown]
  - Oral mucosal exfoliation [Unknown]
  - Skin exfoliation [Unknown]
  - Stevens-Johnson syndrome [Unknown]
  - Thrombocytopenia [Unknown]
